FAERS Safety Report 6673732-2 (Version None)
Quarter: 2010Q2

REPORT INFORMATION
  Report Type: 
  Country: None (occurrence: None)
  Receive Date: 20100407
  Receipt Date: 20100318
  Transmission Date: 20101027
  Serious: Yes (Other)
  Sender: FDA-Public Use
  Company Number: MC201000102

PATIENT
  Age: 72 Year
  Sex: Male
  Weight: 79 kg

DRUGS (3)
  1. CLEVIPREX [Suspect]
     Indication: HAEMORRHAGIC STROKE
     Dosage: 16 MG, HR, INTRAVENOUS
     Route: 042
     Dates: start: 20100316, end: 20100317
  2. CLEVIPREX (CLEVIDIPINE BUTYRATE) EMULSIONI FOR INFUSION, 0.5MG/ML [Suspect]
  3. OPTIRAY 160 [Suspect]
     Indication: COMPUTERISED TOMOGRAM
     Dosage: 150 ML, INTRAVENOUS
     Route: 042
     Dates: start: 20100316, end: 20100316

REACTIONS (1)
  - VENOUS THROMBOSIS LIMB [None]
